FAERS Safety Report 10626789 (Version 1)
Quarter: 2014Q4

REPORT INFORMATION
  Report Type: Spontaneous
  Country: US (occurrence: US)
  Receive Date: 20141204
  Receipt Date: 20141204
  Transmission Date: 20150529
  Serious: Yes (Other)
  Sender: FDA-Public Use
  Company Number: US-PFIZER INC-2014323948

PATIENT
  Sex: Female

DRUGS (1)
  1. CHAPSTICK LIPSHIELD 365 [Suspect]
     Active Substance: AVOBENZONE\DIMETHICONE\HOMOSALATE\OCTINOXATE\OCTISALATE\OXYBENZONE
     Dosage: UNK

REACTIONS (1)
  - Coeliac disease [Unknown]
